FAERS Safety Report 18605601 (Version 2)
Quarter: 2021Q2

REPORT INFORMATION
  Report Type: Spontaneous
  Country: DE (occurrence: DE)
  Receive Date: 20201211
  Receipt Date: 20210602
  Transmission Date: 20210717
  Serious: Yes (Other)
  Sender: FDA-Public Use
  Company Number: DE-MYLANLABS-2020M1100178

PATIENT

DRUGS (14)
  1. ACICLOVIR [Concomitant]
     Active Substance: ACYCLOVIR
     Indication: PROPHYLAXIS
     Dosage: AT EACH CYCLE
     Route: 065
  2. METHOTREXATE. [Suspect]
     Active Substance: METHOTREXATE
     Indication: CENTRAL NERVOUS SYSTEM LYMPHOMA
     Dosage: 2.5 MILLIGRAM, EVERY 2 WEEKS (CYCLE 5, DAY 3?5) (WITH PREDNISOLONE)
  3. ARA?C [Suspect]
     Active Substance: CYTARABINE
     Indication: CENTRAL NERVOUS SYSTEM LYMPHOMA
     Dosage: 3000 MG/M2 BODY?SURFACE AREA AS A 3?H INFUSION, EVERY 3 WEEKS (CYCLE 4 AND 6, DAY 1?2)
     Route: 042
  4. ARA?C [Suspect]
     Active Substance: CYTARABINE
     Indication: CENTRAL NERVOUS SYSTEM LYMPHOMA
     Dosage: 10 MG, EVERY 3 WEEKS (CYCLE 4 AND 6, DAY 6)
  5. ARA?C [Suspect]
     Active Substance: CYTARABINE
     Dosage: 10 MG, EVERY 2 WEEKS (CYCLE 5, DAY 5)
  6. RITUXIMAB. [Suspect]
     Active Substance: RITUXIMAB
     Indication: CENTRAL NERVOUS SYSTEM LYMPHOMA
     Dosage: 375 MG/M2, EVERY 2 WEEKS (CYCLE 1?3, DAY 0)
     Route: 042
  7. SULFAMETHOXAZOLE AND TRIMETHOPRIM [Concomitant]
     Active Substance: SULFAMETHOXAZOLE\TRIMETHOPRIM
     Indication: PROPHYLAXIS
     Dosage: UNK
  8. MESNA. [Concomitant]
     Active Substance: MESNA
     Indication: PROPHYLAXIS
     Dosage: UNK
  9. IFOSFAMIDE. [Suspect]
     Active Substance: IFOSFAMIDE
     Dosage: 800 MG/M2, EVERY 2 WEEKS (CYCLE 5, DAY 2?4)
     Route: 042
  10. PREDNISOLONE. [Suspect]
     Active Substance: PREDNISOLONE
     Indication: CENTRAL NERVOUS SYSTEM LYMPHOMA
     Dosage: 3 MG ICV, EVERY 3 WEEKS (CYCLE 4 AND 6,DAY 3?5) WITH MTX
  11. IFOSFAMIDE. [Suspect]
     Active Substance: IFOSFAMIDE
     Indication: CENTRAL NERVOUS SYSTEM LYMPHOMA
     Dosage: 800 MG/M2, EVERY 2 WEEKS (CYCLE 1?3, DAY 2?4)
     Route: 042
  12. G?CSF [Suspect]
     Active Substance: GRANULOCYTE COLONY-STIMULATING FACTOR NOS
     Indication: PROPHYLAXIS
     Dosage: UNK
  13. METHOTREXATE. [Suspect]
     Active Substance: METHOTREXATE
     Dosage: 2.5 MILLIGRAM, EVERY 3 WEEKS (CYCLE 4 AND 6, DAY 3?5) (WITH PREDNISOLONE)
  14. METHOTREXATE. [Suspect]
     Active Substance: METHOTREXATE
     Indication: CENTRAL NERVOUS SYSTEM LYMPHOMA
     Dosage: 4000 MG/M2, EVERY 2 WEEKS (CYCLE 1?3, DAY 1)
     Route: 042

REACTIONS (2)
  - Pneumonia klebsiella [Unknown]
  - Device related infection [Unknown]
